FAERS Safety Report 15956027 (Version 2)
Quarter: 2019Q2

REPORT INFORMATION
  Report Type: Spontaneous
  Country: JP (occurrence: JP)
  Receive Date: 20190213
  Receipt Date: 20190517
  Transmission Date: 20190711
  Serious: Yes (Other)
  Sender: FDA-Public Use
  Company Number: JP-009507513-1902JPN004779

PATIENT
  Age: 68 Year
  Sex: Male
  Weight: 53 kg

DRUGS (18)
  1. EPADEL S [Concomitant]
     Active Substance: ICOSAPENT ETHYL
     Indication: PERIPHERAL ARTERIAL OCCLUSIVE DISEASE
     Dosage: 900 MILLIGRAM, QD
     Route: 048
     Dates: start: 20180115
  2. CEFMETAZOLE SODIUM [Concomitant]
     Active Substance: CEFMETAZOLE SODIUM
     Indication: URINARY TRACT INFECTION
     Dosage: 1 GRAM, BID
     Route: 042
     Dates: start: 20181015, end: 20181018
  3. CEFAZOLIN SODIUM. [Concomitant]
     Active Substance: CEFAZOLIN SODIUM
     Indication: URINARY TRACT INFECTION
     Dosage: 1 GRAM, BID
     Dates: start: 20181019, end: 20181030
  4. MIYA-BM [Concomitant]
     Active Substance: CLOSTRIDIUM BUTYRICUM SPORES STRAIN M-55
     Indication: GASTROINTESTINAL DISORDER
     Dosage: 6 DOSAGE FORM
     Route: 048
     Dates: start: 20181129
  5. FUROSEMIDE. [Concomitant]
     Active Substance: FUROSEMIDE
     Indication: OEDEMA
     Dosage: 20 MILLIGRAM, QD
     Route: 048
     Dates: start: 20181015
  6. LANSOPRAZOLE. [Concomitant]
     Active Substance: LANSOPRAZOLE
     Indication: GASTROOESOPHAGEAL REFLUX DISEASE
     Dosage: 15 MILLIGRAM, QD
     Dates: start: 20181015, end: 20190108
  7. TAKEPRON [Concomitant]
     Active Substance: LANSOPRAZOLE
     Indication: PRODUCT USED FOR UNKNOWN INDICATION
     Dosage: UNK UNK, UNKNOWN FREQ.
     Route: 065
  8. BIOFERMIN (BIFIDOBACTERIUM BIFIDUM) [Concomitant]
     Indication: GASTROINTESTINAL DISORDER
     Dosage: 6 DOSAGE FORM
     Route: 048
     Dates: start: 20181129
  9. TAMSULOSIN HYDROCHLORIDE. [Concomitant]
     Active Substance: TAMSULOSIN HYDROCHLORIDE
     Indication: BENIGN PROSTATIC HYPERPLASIA
     Dosage: 0.2 MILLIGRAM, QD
     Route: 048
     Dates: start: 20180115, end: 20181203
  10. FIDAXOMICIN [Suspect]
     Active Substance: FIDAXOMICIN
     Indication: CLOSTRIDIUM DIFFICILE INFECTION
     Dosage: 200 MILLIGRAM, QD
     Route: 048
     Dates: start: 20181228, end: 20190105
  11. REMINYL [Concomitant]
     Active Substance: GALANTAMINE
     Indication: DEMENTIA
     Dosage: 8 MILLIGRAM, BID
     Route: 048
     Dates: start: 20181015, end: 20190223
  12. SODIUM FERROUS CITRATE [Concomitant]
     Active Substance: SODIUM FERROUS CITRATE
     Indication: ANAEMIA
     Dosage: 50 MILLIGRAM, QD
     Route: 048
     Dates: start: 20181213
  13. GLIMEPIRIDE. [Concomitant]
     Active Substance: GLIMEPIRIDE
     Indication: DIABETES MELLITUS
     Dosage: 1 MILLIGRAM, QD
     Route: 048
     Dates: start: 20181015, end: 20181130
  14. ONGLYZA [Concomitant]
     Active Substance: SAXAGLIPTIN HYDROCHLORIDE
     Indication: DIABETES MELLITUS
     Dosage: 2.5 MILLIGRAM
     Route: 048
     Dates: start: 20181015, end: 20181203
  15. E KEPPRA [Concomitant]
     Active Substance: LEVETIRACETAM
     Indication: SEIZURE
     Dosage: 500 MILLIGRAM, BID
     Route: 048
     Dates: start: 20181015
  16. CEFTRIAXONE SODIUM. [Concomitant]
     Active Substance: CEFTRIAXONE SODIUM
     Indication: URINARY TRACT INFECTION
     Dosage: 1 GRAM, QD
     Route: 042
     Dates: start: 20181112, end: 20181119
  17. TAZOPIP [Concomitant]
     Active Substance: PIPERACETAZINE\TAZOBACTAM
     Indication: URINARY TRACT INFECTION
     Dosage: 4.5 GRAM, TID
     Route: 042
     Dates: start: 20181129, end: 20181203
  18. VANCOMYCIN [Concomitant]
     Active Substance: VANCOMYCIN
     Indication: CLOSTRIDIUM DIFFICILE COLITIS
     Dosage: 0.5 GRAM, Q6H
     Route: 048
     Dates: start: 20181129, end: 20181211

REACTIONS (2)
  - Prescribed underdose [Unknown]
  - Organising pneumonia [Recovering/Resolving]

NARRATIVE: CASE EVENT DATE: 20181228
